FAERS Safety Report 25332513 (Version 1)
Quarter: 2025Q2

REPORT INFORMATION
  Report Type: Spontaneous
  Country: US (occurrence: US)
  Receive Date: 20250519
  Receipt Date: 20250519
  Transmission Date: 20250717
  Serious: No
  Sender: ALNYLAM PHARMACEUTICALS
  Company Number: US-ALNYLAM PHARMACEUTICALS, INC.-ALN-2025-003059

PATIENT

DRUGS (1)
  1. AMVUTTRA [Suspect]
     Active Substance: VUTRISIRAN
     Indication: Product used for unknown indication
     Route: 058
     Dates: start: 20250428, end: 20250428

REACTIONS (3)
  - Skin irritation [Recovered/Resolved]
  - Urticaria [Unknown]
  - Injection site reaction [Unknown]

NARRATIVE: CASE EVENT DATE: 20250503
